FAERS Safety Report 25644655 (Version 3)
Quarter: 2025Q4

REPORT INFORMATION
  Report Type: Spontaneous
  Country: US (occurrence: US)
  Receive Date: 20250805
  Receipt Date: 20251002
  Transmission Date: 20260117
  Serious: Yes (Other)
  Sender: PFIZER
  Company Number: US-PFIZER INC-202500032726

PATIENT
  Age: 61 Year
  Sex: Female
  Weight: 66.122 kg

DRUGS (2)
  1. BOSULIF [Suspect]
     Active Substance: BOSUTINIB MONOHYDRATE
     Indication: Iron deficiency anaemia
     Dosage: 1 P.O. Q. DAY
     Route: 048
  2. BOSULIF [Suspect]
     Active Substance: BOSUTINIB MONOHYDRATE
     Dosage: 100 MG, 1X/DAY

REACTIONS (2)
  - Hip fracture [Recovering/Resolving]
  - Off label use [Unknown]
